FAERS Safety Report 23913583 (Version 1)
Quarter: 2024Q2

REPORT INFORMATION
  Report Type: Spontaneous
  Country: US (occurrence: US)
  Receive Date: 20240529
  Receipt Date: 20240529
  Transmission Date: 20240716
  Serious: Yes (Hospitalization, Other)
  Sender: FDA-Public Use
  Company Number: US-NOVAST LABORATORIES INC.-2024NOV000243

PATIENT
  Age: 56 Year
  Sex: Male

DRUGS (1)
  1. ACETAZOLAMIDE [Suspect]
     Active Substance: ACETAZOLAMIDE
     Indication: Hypobarism
     Dosage: 250 MG, BID; TOTAL OF 1000 MG WITHIN THE 48 H PRIOR
     Route: 065

REACTIONS (2)
  - Exertional rhabdomyolysis [Recovering/Resolving]
  - Acute kidney injury [Recovering/Resolving]
